FAERS Safety Report 17668029 (Version 1)
Quarter: 2020Q2

REPORT INFORMATION
  Report Type: Spontaneous
  Country: US (occurrence: US)
  Receive Date: 20200414
  Receipt Date: 20200414
  Transmission Date: 20200713
  Serious: Yes (Other)
  Sender: FDA-Public Use
  Company Number: US-BIOMARINAP-US-2020-129471

PATIENT
  Sex: Female

DRUGS (1)
  1. KUVAN [Suspect]
     Active Substance: SAPROPTERIN DIHYDROCHLORIDE
     Indication: PHENYLKETONURIA
     Dosage: 500 MILLIGRAM, QD
     Route: 048
     Dates: start: 201511

REACTIONS (3)
  - Constipation [Recovering/Resolving]
  - Gastric ulcer [Recovering/Resolving]
  - Abdominal pain upper [Recovering/Resolving]
